FAERS Safety Report 4711552-6 (Version None)
Quarter: 2005Q3

REPORT INFORMATION
  Report Type: 
  Country: None (occurrence: None)
  Receive Date: 20050708
  Receipt Date: 20050708
  Transmission Date: 20060218
  Serious: Yes (Hospitalization)
  Sender: FDA-Public Use
  Company Number: None

PATIENT
  Sex: Female
  Weight: 70 kg

DRUGS (9)
  1. FLUDARABINE [Suspect]
     Indication: ACUTE MYELOID LEUKAEMIA
     Dosage: 57 MG IV
     Route: 042
     Dates: start: 20041028, end: 20041101
  2. MELPHALAN [Suspect]
     Indication: BONE MARROW CONDITIONING REGIMEN
     Dosage: IV
     Route: 042
     Dates: start: 20041102
  3. MELPHALAN [Suspect]
     Indication: TRANSPLANT
     Dosage: IV
     Route: 042
     Dates: start: 20041102
  4. CAMPATH [Suspect]
     Dosage: 20 MG
     Dates: start: 20041128, end: 20041101
  5. VORICONAZOLE [Concomitant]
  6. PREVACID [Concomitant]
  7. CYCLOSPORINE [Concomitant]
  8. NORVASC [Concomitant]
  9. TOPROL-XL [Concomitant]

REACTIONS (4)
  - CHEST X-RAY ABNORMAL [None]
  - COUGH [None]
  - FUNGAL INFECTION [None]
  - PULMONARY CAVITATION [None]
